FAERS Safety Report 25704597 (Version 1)
Quarter: 2025Q3

REPORT INFORMATION
  Report Type: Spontaneous
  Country: TR (occurrence: TR)
  Receive Date: 20250820
  Receipt Date: 20250820
  Transmission Date: 20251021
  Serious: Yes (Hospitalization)
  Sender: STRIDES
  Company Number: TR-STRIDES ARCOLAB LIMITED-2025SP010520

PATIENT
  Age: 73 Year
  Sex: Male

DRUGS (3)
  1. SERTRALINE [Interacting]
     Active Substance: SERTRALINE HYDROCHLORIDE
     Indication: Behaviour disorder
     Route: 065
  2. RISPERIDONE [Interacting]
     Active Substance: RISPERIDONE
     Indication: Behaviour disorder
     Route: 065
  3. ASPIRIN [Concomitant]
     Active Substance: ASPIRIN
     Indication: Cerebrovascular accident prophylaxis
     Route: 065

REACTIONS (3)
  - Myoclonus [Recovered/Resolved]
  - Drug interaction [Recovered/Resolved]
  - Off label use [Unknown]
